FAERS Safety Report 14807759 (Version 1)
Quarter: 2018Q2

REPORT INFORMATION
  Report Type: Spontaneous
  Country: PL (occurrence: PL)
  Receive Date: 20180425
  Receipt Date: 20180425
  Transmission Date: 20180711
  Serious: Yes (Other)
  Sender: FDA-Public Use
  Company Number: PL-MYLANLABS-2018M1026748

PATIENT
  Age: 8 Year
  Sex: Male

DRUGS (6)
  1. VIGABATRINE [Concomitant]
     Active Substance: VIGABATRIN
     Indication: SEIZURE
     Route: 065
  2. SYNACTHEN                          /00055703/ [Concomitant]
     Indication: SEIZURE
  3. VALPROIC ACID. [Suspect]
     Active Substance: VALPROIC ACID
     Indication: SEIZURE
     Route: 065
  4. TOPIRAMATE. [Concomitant]
     Active Substance: TOPIRAMATE
     Indication: SEIZURE
     Route: 065
  5. CLOBAZAM [Concomitant]
     Active Substance: CLOBAZAM
     Indication: SEIZURE
     Route: 065
  6. LAMOTRIGINE. [Concomitant]
     Active Substance: LAMOTRIGINE
     Indication: SEIZURE
     Route: 065

REACTIONS (5)
  - Mitochondrial toxicity [Unknown]
  - Paralysis [Unknown]
  - Circulatory collapse [Unknown]
  - Hypertransaminasaemia [Unknown]
  - Hyperlactacidaemia [Unknown]
